FAERS Safety Report 24587263 (Version 1)
Quarter: 2024Q4

REPORT INFORMATION
  Report Type: Spontaneous
  Country: US (occurrence: US)
  Receive Date: 20241107
  Receipt Date: 20241107
  Transmission Date: 20250114
  Serious: Yes (Hospitalization, Other)
  Sender: HIKMA
  Company Number: US-OTSUKA PHARMACEUTICAL NETHERLANDS B.V.-AUR-005766

PATIENT

DRUGS (3)
  1. MYCOPHENOLATE MOFETIL [Suspect]
     Active Substance: MYCOPHENOLATE MOFETIL
     Indication: Systemic lupus erythematosus
     Dosage: 1 GRAM, Q12H
     Route: 065
  2. PREDNISONE [Suspect]
     Active Substance: PREDNISONE
     Indication: Systemic lupus erythematosus
     Dosage: 20 MILLIGRAM, QD
     Route: 065
  3. VOCLOSPORIN [Suspect]
     Active Substance: VOCLOSPORIN
     Indication: Systemic lupus erythematosus
     Dosage: 23.7 MILLIGRAM, Q12H
     Route: 065

REACTIONS (4)
  - Herpes simplex colitis [Recovered/Resolved]
  - Herpes simplex [Recovered/Resolved]
  - Disseminated herpes simplex [Recovered/Resolved]
  - Lower gastrointestinal haemorrhage [Recovered/Resolved]
